FAERS Safety Report 17985342 (Version 14)
Quarter: 2022Q2

REPORT INFORMATION
  Report Type: Spontaneous
  Country: ES (occurrence: ES)
  Receive Date: 20200706
  Receipt Date: 20220407
  Transmission Date: 20220721
  Serious: Yes (Life-Threatening, Hospitalization, Other)
  Sender: FDA-Public Use
  Company Number: ES-KRKA-ES2020K10024LIT

PATIENT
  Age: 66 Year
  Sex: Male

DRUGS (18)
  1. DULOXETINE [Interacting]
     Active Substance: DULOXETINE
     Indication: Bipolar disorder
     Dosage: 120 MILLIGRAM, QD (120 MG (PER DAY))
     Route: 065
  2. DULOXETINE [Interacting]
     Active Substance: DULOXETINE
     Indication: Cervical spinal stenosis
     Dosage: 120 MILLIGRAM, QD (120 MG, QD)
     Route: 065
  3. LOPINAVIR\RITONAVIR [Interacting]
     Active Substance: LOPINAVIR\RITONAVIR
     Indication: COVID-19
     Dosage: 1 DF, 2X PER DAY/400 MG/100 MG, TWICE DAILY
     Route: 048
  4. LOPINAVIR\RITONAVIR [Interacting]
     Active Substance: LOPINAVIR\RITONAVIR
     Indication: COVID-19 pneumonia
     Dosage: UNK, BID,400MG/100 MG, 0.5 DAY
     Route: 065
  5. LOPINAVIR\RITONAVIR [Interacting]
     Active Substance: LOPINAVIR\RITONAVIR
     Dosage: 400 MG/ 100 MG
  6. LOPINAVIR\RITONAVIR [Interacting]
     Active Substance: LOPINAVIR\RITONAVIR
     Dosage: UNK
     Route: 065
  7. LOPINAVIR\RITONAVIR [Interacting]
     Active Substance: LOPINAVIR\RITONAVIR
     Dosage: 1 DOSAGE FORM, BID (400 MG/100 MG TWICE DAILY )
     Route: 065
  8. LOPINAVIR\RITONAVIR [Suspect]
     Active Substance: LOPINAVIR\RITONAVIR
     Indication: COVID-19
     Dosage: FREQUENCY -2 IN 12 HOURS 400 MG/100 MG, TWICE DAILY
  9. LITHIUM [Interacting]
     Active Substance: LITHIUM
     Indication: Bipolar disorder
     Dosage: 800 MILLIGRAM, QD (FREQUENCY - IN 1 DAYS 800 MG, QD)
     Route: 065
  10. HALOPERIDOL [Interacting]
     Active Substance: HALOPERIDOL
     Indication: Delirium
     Dosage: 1 MG, 2X PER DAY/TWICE DAILY
     Route: 048
  11. HALOPERIDOL [Interacting]
     Active Substance: HALOPERIDOL
     Indication: Bipolar disorder
     Dosage: 1 MILLIGRAM, BID, 0.5 DAY, (1 MG TWICE DAILY)
     Route: 065
  12. HALOPERIDOL [Interacting]
     Active Substance: HALOPERIDOL
     Dosage: 1 MILLIGRAM, QD  (FREQUENCY -2 IN 1 DAYS TWICE DAILY)
  13. HALOPERIDOL [Interacting]
     Active Substance: HALOPERIDOL
     Dosage: UNK UNK, QD
     Route: 065
  14. HALOPERIDOL [Interacting]
     Active Substance: HALOPERIDOL
     Dosage: 1 MICROGRAM, BID
  15. HYDROXYCHLOROQUINE [Suspect]
     Active Substance: HYDROXYCHLOROQUINE
     Indication: COVID-19
     Dosage: 200 MILLIGRAM (FREQUENCY -2 IN 12 HOURS 200 MG, TWICE DAILY)
  16. HYDROXYCHLOROQUINE [Concomitant]
     Active Substance: HYDROXYCHLOROQUINE
     Indication: COVID-19 treatment
     Dosage: 200 MG, 2X PER DAY/200 MG, TWICE DAILY
     Route: 065
  17. HYDROXYCHLOROQUINE [Concomitant]
     Active Substance: HYDROXYCHLOROQUINE
     Indication: COVID-19
     Dosage: 200 MILLIGRAM, QD (200 MILLIGRAM, 0.5 DAY)
  18. HYDROXYCHLOROQUINE [Concomitant]
     Active Substance: HYDROXYCHLOROQUINE
     Indication: COVID-19 pneumonia
     Dosage: 200 MILLIGRAM, BID (200 MG, BID)
     Route: 065

REACTIONS (19)
  - Delirium [Recovering/Resolving]
  - Encephalopathy [Recovered/Resolved]
  - Speech sound disorder [Recovering/Resolving]
  - Blood creatinine increased [Recovered/Resolved]
  - Clonus [Recovered/Resolved]
  - Serotonin syndrome [Recovered/Resolved]
  - Depressed level of consciousness [Recovering/Resolving]
  - Hyperhidrosis [Recovered/Resolved]
  - Hyperreflexia [Recovered/Resolved]
  - Myoclonus [Recovered/Resolved]
  - Urinary retention [Recovered/Resolved]
  - Tachycardia [Recovered/Resolved]
  - Blood pressure increased [Recovered/Resolved]
  - Hypertension [Recovered/Resolved]
  - Blood creatine phosphokinase increased [Recovering/Resolving]
  - Off label use [Unknown]
  - Drug interaction [Recovered/Resolved]
  - Intentional product misuse [Unknown]
  - Hyperthermia [Recovering/Resolving]
